FAERS Safety Report 8776260 (Version 2)
Quarter: 2012Q4

REPORT INFORMATION
  Report Type: 
  Country: JP (occurrence: JP)
  Receive Date: 20120910
  Receipt Date: 20120910
  Transmission Date: 20130627
  Serious: Yes (Other)
  Sender: FDA-Public Use
  Company Number: JP-BRISTOL-MYERS SQUIBB COMPANY-16869521

PATIENT
  Age: 7 None
  Sex: Female

DRUGS (1)
  1. PARAPLATIN INJ 150 MG [Suspect]
     Indication: LUNG NEOPLASM MALIGNANT

REACTIONS (1)
  - Muscular weakness [Recovering/Resolving]
